FAERS Safety Report 8770515 (Version 1)
Quarter: 2012Q4

REPORT INFORMATION
  Report Type: 
  Country: US (occurrence: US)
  Receive Date: 20120906
  Receipt Date: 20120906
  Transmission Date: 20130627
  Serious: Yes (Hospitalization, Other)
  Sender: FDA-Public Use
  Company Number: US-PFIZER INC-2012214284

PATIENT
  Age: 72 Year
  Sex: Female

DRUGS (1)
  1. DETROL LA [Suspect]
     Dosage: 2 mg, 1x/day

REACTIONS (2)
  - Parkinson^s disease [Unknown]
  - Fall [Unknown]
